FAERS Safety Report 15906989 (Version 1)
Quarter: 2019Q1

REPORT INFORMATION
  Report Type: Spontaneous
  Country: US (occurrence: US)
  Receive Date: 20190111
  Receipt Date: 20190111
  Transmission Date: 20190417
  Serious: No
  Sender: FDA-Public Use
  Company Number: None

PATIENT
  Age: 51 Year

DRUGS (1)
  1. MYCOPHENOLATE MOFETIL 500MG TABLET [Suspect]
     Active Substance: MYCOPHENOLATE MOFETIL
     Dates: start: 201608

REACTIONS (6)
  - Multi-organ disorder [None]
  - Weight increased [None]
  - Bone loss [None]
  - Organ transplant [None]
  - Arterial disorder [None]
  - Blood glucose abnormal [None]

NARRATIVE: CASE EVENT DATE: 20160801
